FAERS Safety Report 23421365 (Version 1)
Quarter: 2024Q1

REPORT INFORMATION
  Report Type: Report from Study
  Country: US (occurrence: US)
  Receive Date: 20240119
  Receipt Date: 20240119
  Transmission Date: 20240409
  Serious: Yes (Other)
  Sender: FDA-Public Use
  Company Number: US-ABBVIE-5595817

PATIENT
  Sex: Female

DRUGS (1)
  1. VENCLEXTA [Suspect]
     Active Substance: VENETOCLAX
     Indication: Product used for unknown indication
     Dosage: FORM STRENGTH: 100 MILLIGRAM?DURATION: WITH FOOD AND A FULL GLASS OF WATER
     Route: 048

REACTIONS (1)
  - Hospice care [Unknown]
